FAERS Safety Report 17462705 (Version 3)
Quarter: 2020Q2

REPORT INFORMATION
  Report Type: Report from Study
  Country: US (occurrence: US)
  Receive Date: 20200226
  Receipt Date: 20200423
  Transmission Date: 20200713
  Serious: Yes (Other)
  Sender: FDA-Public Use
  Company Number: NVSC2020US053226

PATIENT
  Age: 58 Year
  Sex: Female
  Weight: 71.66 kg

DRUGS (2)
  1. MAYZENT [Suspect]
     Active Substance: SIPONIMOD
     Indication: MULTIPLE SCLEROSIS
     Dosage: 2 MG
     Route: 065
  2. MAYZENT [Suspect]
     Active Substance: SIPONIMOD
     Dosage: 2 MG, QD
     Route: 048
     Dates: start: 20191216, end: 20200203

REACTIONS (8)
  - Macular fibrosis [Unknown]
  - Eye inflammation [Recovering/Resolving]
  - Cystoid macular oedema [Unknown]
  - Musculoskeletal pain [Unknown]
  - Chorioretinal scar [Unknown]
  - Headache [Recovering/Resolving]
  - Neck pain [Recovering/Resolving]
  - Eye pain [Unknown]

NARRATIVE: CASE EVENT DATE: 20200203
